FAERS Safety Report 20853718 (Version 1)
Quarter: 2022Q2

REPORT INFORMATION
  Report Type: Spontaneous
  Country: US (occurrence: None)
  Receive Date: 20220518
  Receipt Date: 20220518
  Transmission Date: 20220720
  Serious: Yes (Disabling)
  Sender: FDA-Public Use
  Company Number: None

PATIENT
  Age: 57 Year
  Sex: Female

DRUGS (2)
  1. GABAPENTIN [Suspect]
     Active Substance: GABAPENTIN
     Indication: Pain
     Dosage: OTHER QUANTITY : 1 CAPSULE(S);?FREQUENCY : TWICE A DAY;?
     Route: 048
     Dates: start: 20220330, end: 20220406
  2. NYSTATIN [Suspect]
     Active Substance: NYSTATIN
     Indication: Fungal skin infection
     Dosage: OTHER STRENGTH : UNIT/GM POWD;?OTHER QUANTITY : 1 GRAM;?FREQUENCY : 3 TIMES A DAY;?
     Route: 061
     Dates: start: 20220509, end: 20220513

REACTIONS (6)
  - Pain [None]
  - Vertigo [None]
  - Insomnia [None]
  - Concussion [None]
  - Dyslexia [None]
  - Amnesia [None]

NARRATIVE: CASE EVENT DATE: 20220406
